FAERS Safety Report 8421971-2 (Version None)
Quarter: 2012Q2

REPORT INFORMATION
  Report Type: 
  Country: None (occurrence: None)
  Receive Date: 20120608
  Receipt Date: 20120601
  Transmission Date: 20120825
  Serious: Yes (Death, Other)
  Sender: FDA-Public Use
  Company Number: US-PFIZER INC-2012095155

PATIENT
  Sex: Female

DRUGS (6)
  1. IBUPROFEN [Suspect]
     Dosage: UNK
  2. ZYRTEC [Suspect]
     Dosage: UNK
  3. DELSYM [Interacting]
     Dosage: UNK
  4. ACETAMINOPHEN [Suspect]
     Indication: PYREXIA
     Dosage: UNK
  5. CETIRIZINE [Interacting]
     Dosage: UNK
  6. TRIAMINIC SRT [Suspect]
     Indication: COUGH
     Dosage: UNK

REACTIONS (9)
  - MUSCLE SPASMS [None]
  - UNRESPONSIVE TO STIMULI [None]
  - FEELING HOT [None]
  - CIRCUMSTANCE OR INFORMATION CAPABLE OF LEADING TO MEDICATION ERROR [None]
  - PAIN IN EXTREMITY [None]
  - DRUG INTERACTION [None]
  - ACCIDENTAL OVERDOSE [None]
  - TOXICITY TO VARIOUS AGENTS [None]
  - DYSPNOEA [None]
